FAERS Safety Report 8197815-3 (Version None)
Quarter: 2012Q1

REPORT INFORMATION
  Report Type: 
  Country: None (occurrence: None)
  Receive Date: 20120309
  Receipt Date: 20120302
  Transmission Date: 20120608
  Serious: Yes (Other)
  Sender: FDA-Public Use
  Company Number: US-ABBOTT-12P-163-0911369-00

PATIENT
  Sex: Female
  Weight: 40.86 kg

DRUGS (6)
  1. HYDROCODONE BITARTRATE [Suspect]
     Indication: POSTOPERATIVE ANALGESIA
     Dates: start: 19971201, end: 19971201
  2. CLONAZEPAM [Concomitant]
     Indication: OBSESSIVE-COMPULSIVE DISORDER
  3. APRESIO [Concomitant]
     Indication: CROHN'S DISEASE
  4. CLONAZEPAM [Concomitant]
     Indication: ANXIETY
  5. HYDROCODONE BITARTRATE [Suspect]
     Indication: TOE OPERATION
  6. CLONAZEPAM [Concomitant]
     Indication: PANIC DISORDER

REACTIONS (4)
  - VOMITING [None]
  - HALLUCINATION [None]
  - ABDOMINAL DISCOMFORT [None]
  - DIARRHOEA [None]
